FAERS Safety Report 12326247 (Version 1)
Quarter: 2016Q2

REPORT INFORMATION
  Report Type: Spontaneous
  Country: DE (occurrence: DE)
  Receive Date: 20160503
  Receipt Date: 20160503
  Transmission Date: 20160815
  Serious: Yes (Other)
  Sender: FDA-Public Use
  Company Number: DE-009507513-1604DEU012132

PATIENT
  Age: 38 Year
  Sex: Female

DRUGS (1)
  1. IMPLANON [Suspect]
     Active Substance: ETONOGESTREL
     Indication: CONTRACEPTION
     Dosage: UNK
     Route: 058
     Dates: start: 2010, end: 20160418

REACTIONS (8)
  - Gamma-glutamyltransferase increased [Unknown]
  - Focal nodular hyperplasia [Unknown]
  - Fatigue [Unknown]
  - Incorrect drug administration duration [Recovered/Resolved]
  - Hepatic adenoma [Unknown]
  - Device dislocation [Recovered/Resolved]
  - Tonsillectomy [Unknown]
  - Device deployment issue [Recovered/Resolved]

NARRATIVE: CASE EVENT DATE: 2010
